FAERS Safety Report 14700106 (Version 1)
Quarter: 2018Q1

REPORT INFORMATION
  Report Type: Spontaneous
  Country: DE (occurrence: DE)
  Receive Date: 20180330
  Receipt Date: 20180330
  Transmission Date: 20180509
  Serious: Yes (Other)
  Sender: FDA-Public Use
  Company Number: DE-PFIZER INC-2018125621

PATIENT
  Sex: Female

DRUGS (3)
  1. LEVETIRACETAM. [Suspect]
     Active Substance: LEVETIRACETAM
     Indication: EPILEPSY
     Dosage: 1000 MG, 1X/DAY
     Route: 064
     Dates: start: 20161025, end: 20170802
  2. FOLIO FORTE + D3 [Concomitant]
     Indication: PROPHYLAXIS OF NEURAL TUBE DEFECT
     Dosage: 0.8 MG, 1X/DAY
     Route: 064
     Dates: start: 20161212, end: 20170802
  3. FOLIO FORTE + D3 [Concomitant]
     Indication: SUPPLEMENTATION THERAPY

REACTIONS (2)
  - Maternal exposure during pregnancy [Recovering/Resolving]
  - Small for dates baby [Recovering/Resolving]

NARRATIVE: CASE EVENT DATE: 20170802
